FAERS Safety Report 13627750 (Version 1)
Quarter: 2017Q2

REPORT INFORMATION
  Report Type: Spontaneous
  Country: US (occurrence: US)
  Receive Date: 20170531
  Receipt Date: 20170531
  Transmission Date: 20170830
  Serious: Yes (Hospitalization)
  Sender: FDA-Public Use
  Company Number: US-ASTELLAS-1576895

PATIENT
  Sex: Male

DRUGS (5)
  1. VITAMIN E [Concomitant]
     Active Substance: .ALPHA.-TOCOPHEROL
  2. TARCEVA [Suspect]
     Active Substance: ERLOTINIB HYDROCHLORIDE
     Indication: LUNG NEOPLASM MALIGNANT
     Route: 048
     Dates: start: 20150109
  3. TYLENOL [Concomitant]
     Active Substance: ACETAMINOPHEN
  4. VITAMIN B12 [Concomitant]
     Active Substance: CYANOCOBALAMIN
  5. TAMSULOSIN HCL [Concomitant]
     Active Substance: TAMSULOSIN

REACTIONS (1)
  - Sepsis [Unknown]
